FAERS Safety Report 19489527 (Version 1)
Quarter: 2021Q3

REPORT INFORMATION
  Report Type: Spontaneous
  Country: NL (occurrence: NL)
  Receive Date: 20210703
  Receipt Date: 20210703
  Transmission Date: 20211014
  Serious: Yes (Life-Threatening)
  Sender: FDA-Public Use
  Company Number: NL-TEVA-2021-NL-1926984

PATIENT
  Age: 59 Year
  Sex: Female
  Weight: 85 kg

DRUGS (2)
  1. QUETIAPINE TABLET FO 100MG / BRAND NAME NOT SPECIFIED [Suspect]
     Active Substance: QUETIAPINE
     Indication: OBSESSIVE THOUGHTS
     Dosage: 25 MG PER DAY, FOR 3 WEEKS, STARTED AT THE SAME TIME, NOW STOPPED , UNIT DOSE : 25 MG
     Dates: start: 20210505, end: 20210601
  2. TEMAZEPAM TABLET 20MG / BRAND NAME NOT SPECIFIED [Concomitant]
     Dosage: 20 MG (MILLIGRAM) , THERAPY START DATE AND END DATE : ASKU

REACTIONS (9)
  - Fatigue [Not Recovered/Not Resolved]
  - Thirst [Recovering/Resolving]
  - Oedema peripheral [Not Recovered/Not Resolved]
  - Decreased appetite [Recovering/Resolving]
  - Lymph node pain [Not Recovered/Not Resolved]
  - Headache [Not Recovered/Not Resolved]
  - Nausea [Recovering/Resolving]
  - Urinary retention [Recovering/Resolving]
  - Malaise [Not Recovered/Not Resolved]

NARRATIVE: CASE EVENT DATE: 20210508
